FAERS Safety Report 9524566 (Version 1)
Quarter: 2013Q1

REPORT INFORMATION
  Report Type: Spontaneous
  Country: US (occurrence: None)
  Receive Date: 20130313
  Receipt Date: 20130313
  Transmission Date: 20140127
  Serious: No
  Sender: FDA-Public Use
  Company Number: 1000038459

PATIENT
  Age: 41 Year
  Sex: Female

DRUGS (5)
  1. SAVELLA [Suspect]
     Indication: FIBROMYALGIA
     Route: 048
     Dates: start: 2011, end: 2011
  2. SAVELLA [Suspect]
     Dosage: 100 MG )50 MG, 2 IN 1 D), ORAL?
     Route: 048
     Dates: start: 2011, end: 20120909
  3. AMITIZA (LUBIPROSTONE) (LUBIPROSTONE) [Concomitant]
  4. TIZANIDINE (TIZANIDINE) (TIZANIDINE) [Concomitant]
  5. HYDROCHLOROTHIAZIDE (HYDROCHLOROTHIAZIDE)( (HYDROCHLOROTHIAZIDE) [Concomitant]

REACTIONS (6)
  - Nausea [None]
  - Dizziness [None]
  - Headache [None]
  - Asthenia [None]
  - Malaise [None]
  - Drug effect increased [None]
